FAERS Safety Report 6192110-6 (Version None)
Quarter: 2009Q2

REPORT INFORMATION
  Report Type: 
  Country: None (occurrence: None)
  Receive Date: 20090515
  Receipt Date: 20090505
  Transmission Date: 20091009
  Serious: Yes (Other)
  Sender: FDA-Public Use
  Company Number: US-NOVOPROD-286927

PATIENT
  Sex: Female
  Weight: 56.689 kg

DRUGS (10)
  1. VAGIFEM [Suspect]
     Indication: MENOPAUSE
     Dosage: 25 UG TABLETS
     Route: 067
     Dates: start: 20021119, end: 20040812
  2. PREMPRO [Suspect]
     Indication: MENOPAUSE
     Dosage: .625/2.5 MG, QD
     Route: 048
     Dates: start: 20010710, end: 20020703
  3. FEMHRT [Suspect]
     Indication: MENOPAUSE
     Dosage: 1 TAB, QD
     Route: 048
     Dates: start: 20021108, end: 20051210
  4. ORAL CONTRACEPTIVE NOS [Concomitant]
     Indication: CONTRACEPTION
     Dates: start: 19720101, end: 19780101
  5. ALLEGRA [Concomitant]
     Indication: NASAL CONGESTION
     Route: 048
     Dates: start: 20010101, end: 20020101
  6. ZOLOFT [Concomitant]
     Indication: STRESS
     Route: 048
     Dates: start: 20010101, end: 20020101
  7. WELLBUTRIN [Concomitant]
     Indication: STRESS
     Route: 048
     Dates: start: 20020101, end: 20040101
  8. DIFLUCAN [Concomitant]
     Indication: FUNGAL INFECTION
     Route: 048
     Dates: start: 20020101, end: 20030101
  9. BUPROPION HCL ER [Concomitant]
     Indication: STRESS
     Route: 048
     Dates: start: 20040101
  10. ALENDRONATE [Concomitant]
     Indication: OSTEOPOROSIS
     Dosage: UNK, UNK
     Route: 048
     Dates: start: 20060101

REACTIONS (1)
  - BREAST CANCER [None]
